FAERS Safety Report 17747545 (Version 6)
Quarter: 2020Q3

REPORT INFORMATION
  Report Type: Spontaneous
  Country: US (occurrence: US)
  Receive Date: 20200505
  Receipt Date: 20200813
  Transmission Date: 20201102
  Serious: Yes (Other)
  Sender: FDA-Public Use
  Company Number: US-PFIZER INC-2020164000

PATIENT
  Age: 63 Year
  Sex: Female
  Weight: 42.18 kg

DRUGS (31)
  1. PREPARATION H RAPID RELIEF [Suspect]
     Active Substance: GLYCERIN\LIDOCAINE
     Indication: IRRITABLE BOWEL SYNDROME
  2. MUPIROCIN. [Concomitant]
     Active Substance: MUPIROCIN
     Dosage: UNK
  3. PREPARATION H RAPID RELIEF [Suspect]
     Active Substance: GLYCERIN\LIDOCAINE
     Indication: HAEMORRHOIDS
     Dosage: UNK
     Route: 061
  4. QUETIAPINE. [Concomitant]
     Active Substance: QUETIAPINE
     Indication: ANXIETY
     Dosage: 200 MG, 1X/DAY
     Dates: start: 2017
  5. CARBAMAZEPINE. [Concomitant]
     Active Substance: CARBAMAZEPINE
     Dosage: 400 MG (400 MG TABLET, EXTENDED RELEASE, 12 HR)
  6. PROGEST [Concomitant]
     Dosage: 40 MG
  7. GABAPENTIN. [Concomitant]
     Active Substance: GABAPENTIN
     Indication: NEUROPATHY PERIPHERAL
  8. QUETIAPINE. [Concomitant]
     Active Substance: QUETIAPINE
     Indication: INSOMNIA
     Dosage: 50 MG, 1X/DAY (TAKE 1 TABLET(S) EVERY DAY BY ORAL ROUTE AT BEDTIME FOR 90 DAYS)
     Route: 048
  9. CALCIUM 600+D3 [Concomitant]
     Active Substance: CALCIUM CARBONATE\VITAMIN D
     Dosage: 400 IU, DAILY
     Route: 048
  10. HYDROCORTISONE. [Concomitant]
     Active Substance: HYDROCORTISONE
     Dosage: UNK (APPLY A THIN LAYER TO THE AFFECTED AREA(S) BY TOPICAL ROUTE 2?4 TIMES DAILY)
     Route: 061
  11. PREPARATION H RAPID RELIEF [Suspect]
     Active Substance: GLYCERIN\LIDOCAINE
     Indication: PRURITUS
  12. PREPARATION H RAPID RELIEF [Suspect]
     Active Substance: GLYCERIN\LIDOCAINE
     Indication: PAIN
  13. GABAPENTIN. [Concomitant]
     Active Substance: GABAPENTIN
     Indication: FIBROMYALGIA
     Dosage: 300 MG, 2X/DAY
     Route: 048
     Dates: start: 2019
  14. TRAZODONE [Concomitant]
     Active Substance: TRAZODONE HYDROCHLORIDE
     Indication: SLEEP DISORDER
     Dosage: 300 MG, 1X/DAY
     Route: 048
     Dates: start: 2017
  15. DIAZEPAM. [Concomitant]
     Active Substance: DIAZEPAM
     Dosage: 2 MG, 2X/DAY (TAKE 1 TABLET(S) TWICE A DAY BY ORAL ROUTE FOR 30 DAYS)
     Route: 048
  16. FUROSEMIDE. [Concomitant]
     Active Substance: FUROSEMIDE
     Dosage: 20 MG, DAILY
     Route: 048
  17. PROLIA [Concomitant]
     Active Substance: DENOSUMAB
     Dosage: 1 MG
     Route: 058
  18. TRIAMCINOLONE ACETONIDE. [Concomitant]
     Active Substance: TRIAMCINOLONE ACETONIDE
     Dosage: UNK, 2X/DAY (APPLY A THIN LAYER TO THE AFFECTED AREA(S) BY TOPICAL ROUTE 2 TIMES PER DAY)
     Route: 061
  19. BENZONATATE. [Concomitant]
     Active Substance: BENZONATATE
     Dosage: 200 MG, AS NEEDED (TAKE 1 CAPSULE(S) 3 TIMES A DAY BY ORAL ROUTE AS NEEDED)
     Route: 048
  20. INFLUENZA VACCIN [Concomitant]
     Active Substance: INFLUENZA VIRUS VACCINE
     Dosage: UNK
     Dates: start: 20190919
  21. INFLUENZA VACCIN [Concomitant]
     Active Substance: INFLUENZA VIRUS VACCINE
     Dosage: UNK
     Dates: start: 20161004
  22. SILVER SULFADIAZINE. [Concomitant]
     Active Substance: SILVER SULFADIAZINE
     Dosage: 1 %, 2X/DAY (APPLY TO AREA 2 TIMES PER DAY)
     Route: 061
  23. BIESTROGEN [Concomitant]
     Dosage: UNK (2.5)
  24. PREPARATION H RAPID RELIEF [Suspect]
     Active Substance: GLYCERIN\LIDOCAINE
     Indication: PROCTALGIA
  25. CLONIDINE HCL [Concomitant]
     Active Substance: CLONIDINE HYDROCHLORIDE
     Dosage: 0.1 MG, DAILY (TAKE 1 TABLET(S) EVERY DAY BY ORAL ROUTE AT BEDTIME TOR 90 DAYS)
     Route: 048
  26. FLUCELVAX QUADRIVALENT [Concomitant]
     Dosage: UNK ((PF) 60 MCG (15 MCG X 4)/0.5 ML IM SYRINGE)
     Route: 030
  27. PROAIR HFA [Concomitant]
     Active Substance: ALBUTEROL SULFATE
     Dosage: 2 DF, EVERY 4 HRS (INHALE 2 PUFF(S) EVERY 4 HOURS BY INHALATLON ROUTE AS NEEDED FOR 90 DAYS)
  28. INFLUENZA VACCIN [Concomitant]
     Active Substance: INFLUENZA VIRUS VACCINE
     Dosage: UNK
     Dates: start: 20190918
  29. INFLUENZA VACCIN [Concomitant]
     Active Substance: INFLUENZA VIRUS VACCINE
     Dosage: UNK
     Dates: start: 20081001
  30. ERGOCALCIFEROL. [Concomitant]
     Active Substance: ERGOCALCIFEROL
     Dosage: 1250 UG, WEEKLY (TAKE 1 CAPSULE(S) EVERY WEEK BY ORAL ROUTE FOR 84 DAYS)
     Route: 048
  31. INFLUENZA VACCIN [Concomitant]
     Active Substance: INFLUENZA VIRUS VACCINE
     Dosage: UNK
     Dates: start: 20190918

REACTIONS (42)
  - Intentional product misuse [Unknown]
  - Femoral neck fracture [Unknown]
  - Urticaria [Unknown]
  - Fatigue [Unknown]
  - Hypoaesthesia [Unknown]
  - Drug ineffective [Unknown]
  - Cough [Unknown]
  - Pollakiuria [Unknown]
  - Musculoskeletal stiffness [Unknown]
  - Night sweats [Unknown]
  - Haemorrhoids [Unknown]
  - Neurodermatitis [Unknown]
  - Irritable bowel syndrome [Unknown]
  - Anorectal disorder [Recovered/Resolved]
  - Anxiety [Unknown]
  - Dyspepsia [Unknown]
  - Headache [Unknown]
  - Palpitations [Unknown]
  - Menopausal disorder [Unknown]
  - Pressure of speech [Unknown]
  - Micturition urgency [Unknown]
  - Skin irritation [Unknown]
  - Schizophrenia [Unknown]
  - Asthenia [Unknown]
  - Dermatitis [Unknown]
  - Neuropathy peripheral [Unknown]
  - Menopausal symptoms [Unknown]
  - Anogenital warts [Unknown]
  - Insomnia [Unknown]
  - Back pain [Unknown]
  - Dizziness [Unknown]
  - Dyspnoea [Unknown]
  - Muscular weakness [Unknown]
  - Constipation [Unknown]
  - Blister [Recovered/Resolved]
  - Fibromyalgia [Unknown]
  - Bone disorder [Unknown]
  - Hormone level abnormal [Unknown]
  - Burning sensation [Unknown]
  - Mixed anxiety and depressive disorder [Unknown]
  - Arthralgia [Unknown]
  - Condition aggravated [Unknown]

NARRATIVE: CASE EVENT DATE: 20190729
